FAERS Safety Report 5268863-8 (Version None)
Quarter: 2007Q1

REPORT INFORMATION
  Report Type: 
  Country: None (occurrence: None)
  Receive Date: 20061212
  Receipt Date: 20050808
  Transmission Date: 20070707
  Serious: Yes (Hospitalization)
  Sender: FDA-Public Use
  Company Number: 2005UW06040

PATIENT
  Age: 81 Year
  Sex: Male

DRUGS (11)
  1. CASODEX [Suspect]
     Indication: PROSTATE CANCER
     Dates: start: 19840101
  2. CASODEX [Suspect]
     Indication: PROSTATE CANCER
     Dosage: 50 MG PO
     Route: 048
     Dates: start: 20040801, end: 20040801
  3. CASODEX [Suspect]
     Indication: PROSTATE CANCER
     Dosage: 50 MG DAILY PO
     Route: 048
     Dates: start: 20040912, end: 20050412
  4. TOPROL-XL [Concomitant]
  5. LISINOPRIL [Concomitant]
  6. SIMVASTATIN [Concomitant]
  7. AGGRENOX [Concomitant]
  8. ASPIRIN [Concomitant]
  9. COUMADIN [Concomitant]
  10. INDERAL LA [Concomitant]
  11. ZOCOR [Concomitant]

REACTIONS (6)
  - ASTHENIA [None]
  - CONFUSIONAL STATE [None]
  - DIPLOPIA [None]
  - DIZZINESS [None]
  - PARAESTHESIA [None]
  - TREMOR [None]
